FAERS Safety Report 24410753 (Version 1)
Quarter: 2024Q4

REPORT INFORMATION
  Report Type: Spontaneous
  Country: US (occurrence: US)
  Receive Date: 20241008
  Receipt Date: 20241008
  Transmission Date: 20250115
  Serious: No
  Sender: AMNEAL
  Company Number: US-AMNEAL PHARMACEUTICALS-2024-AMRX-02982

PATIENT

DRUGS (1)
  1. ACETAMINOPHEN\HYDROCODONE [Suspect]
     Active Substance: ACETAMINOPHEN\HYDROCODONE
     Indication: Pain
     Dosage: 5/365 MG
     Route: 048

REACTIONS (4)
  - Palpitations [Unknown]
  - Abnormal behaviour [Unknown]
  - Drug ineffective [Unknown]
  - Dizziness [Unknown]
